FAERS Safety Report 6784258-X (Version None)
Quarter: 2010Q2

REPORT INFORMATION
  Report Type: 
  Country: None (occurrence: None)
  Receive Date: 20100622
  Receipt Date: 20100607
  Transmission Date: 20101027
  Serious: Yes (Other)
  Sender: FDA-Public Use
  Company Number: CA-ASTRAZENECA-2010SE28769

PATIENT
  Sex: Female

DRUGS (8)
  1. CRESTOR [Suspect]
     Route: 048
  2. ASPIRIN [Suspect]
     Route: 065
  3. APO FUROSEMIDE [Suspect]
     Route: 065
  4. PANTOPRAZOLE SODIUM [Suspect]
     Route: 065
  5. DIDROCAL [Suspect]
     Dosage: DIDROCAL 400 MG TABLET AND 1250 MG (CA CARB.) TABLET (500 MG CA)
     Route: 065
  6. DIOVAN [Suspect]
     Route: 065
  7. SYNTHROID [Suspect]
     Route: 065
  8. VITAMIN D [Suspect]
     Route: 065

REACTIONS (1)
  - ANOSMIA [None]
